FAERS Safety Report 17464194 (Version 3)
Quarter: 2021Q4

REPORT INFORMATION
  Report Type: Spontaneous
  Country: CO (occurrence: CO)
  Receive Date: 20200226
  Receipt Date: 20211029
  Transmission Date: 20220303
  Serious: Yes (Other)
  Sender: FDA-Public Use
  Company Number: CO-MERCK HEALTHCARE KGAA-9147374

PATIENT
  Age: 61 Year
  Sex: Male
  Weight: 87 kg

DRUGS (5)
  1. METFORMIN [Suspect]
     Active Substance: METFORMIN HYDROCHLORIDE
     Indication: Diabetes mellitus
     Route: 065
  2. COSENTYX [Suspect]
     Active Substance: SECUKINUMAB
     Indication: Ankylosing spondylitis
     Route: 058
     Dates: start: 20191111
  3. COSENTYX [Suspect]
     Active Substance: SECUKINUMAB
     Dosage: PRE FILLED SYRINGE
  4. LOSARTAN [Suspect]
     Active Substance: LOSARTAN
     Indication: Hypertension
     Route: 048
  5. VILDAGLIPTIN [Concomitant]
     Active Substance: VILDAGLIPTIN
     Indication: Product used for unknown indication

REACTIONS (10)
  - Pterygium [Not Recovered/Not Resolved]
  - Thrombosis [Unknown]
  - Neck pain [Unknown]
  - Spinal pain [Unknown]
  - Back pain [Unknown]
  - Inflammation [Unknown]
  - COVID-19 [Unknown]
  - Blood glucose increased [Recovered/Resolved]
  - Underweight [Unknown]
  - Rash macular [Unknown]

NARRATIVE: CASE EVENT DATE: 20200101
